FAERS Safety Report 21535415 (Version 2)
Quarter: 2022Q4

REPORT INFORMATION
  Report Type: Spontaneous
  Country: US (occurrence: US)
  Receive Date: 20221101
  Receipt Date: 20221226
  Transmission Date: 20230113
  Serious: No
  Sender: FDA-Public Use
  Company Number: US-MIGRATION_PFIZER-2022BHV002228

PATIENT
  Age: 56 Year
  Sex: Female

DRUGS (2)
  1. NURTEC ODT [Suspect]
     Active Substance: RIMEGEPANT SULFATE
     Indication: Neck pain
     Dosage: 1 TABLET AS NEEDED?INDICATION FOR USE (ACUTE / PREVENTION): ACUTE
     Route: 048
     Dates: start: 20220802
  2. NURTEC ODT [Suspect]
     Active Substance: RIMEGEPANT SULFATE
     Indication: Procedural headache

REACTIONS (1)
  - Product use in unapproved indication [Unknown]
